FAERS Safety Report 10204686 (Version 1)
Quarter: 2014Q2

REPORT INFORMATION
  Report Type: Spontaneous
  Country: BE (occurrence: BE)
  Receive Date: 20140529
  Receipt Date: 20140529
  Transmission Date: 20141212
  Serious: Yes (Other)
  Sender: FDA-Public Use
  Company Number: BE-JNJFOC-20140513283

PATIENT
  Age: 82 Year
  Sex: Male

DRUGS (6)
  1. XARELTO [Suspect]
     Indication: CEREBROVASCULAR ACCIDENT PROPHYLAXIS
     Route: 048
     Dates: start: 201404
  2. XARELTO [Suspect]
     Indication: ATRIAL FIBRILLATION
     Route: 048
     Dates: start: 201404
  3. TOTALIP [Concomitant]
     Route: 065
  4. NOVORAPID [Concomitant]
     Route: 065
  5. TRITACE [Concomitant]
     Route: 065
  6. LANTUS [Concomitant]
     Route: 065

REACTIONS (1)
  - Transient ischaemic attack [Unknown]
